FAERS Safety Report 21254490 (Version 2)
Quarter: 2022Q4

REPORT INFORMATION
  Report Type: Report from Study
  Country: US (occurrence: US)
  Receive Date: 20220825
  Receipt Date: 20221121
  Transmission Date: 20230112
  Serious: Yes (Other)
  Sender: FDA-Public Use
  Company Number: US-ABBVIE-22K-163-4516472-00

PATIENT
  Sex: Female
  Weight: 88.45 kg

DRUGS (2)
  1. SKYRIZI [Suspect]
     Active Substance: RISANKIZUMAB-RZAA
     Indication: Psoriasis
     Dosage: EVERY 84 DAYS, FORM STRENGTH: 150 MG/ML
     Route: 058
     Dates: start: 202105
  2. OTEZLA [Concomitant]
     Active Substance: APREMILAST
     Indication: Product used for unknown indication
     Route: 065

REACTIONS (5)
  - Parathyroidectomy [Recovered/Resolved]
  - Parathyroid hyperplasia [Unknown]
  - Psoriasis [Not Recovered/Not Resolved]
  - Benign neoplasm of thyroid gland [Unknown]
  - Nodular regenerative hyperplasia [Unknown]

NARRATIVE: CASE EVENT DATE: 20160101
